FAERS Safety Report 17686049 (Version 1)
Quarter: 2020Q2

REPORT INFORMATION
  Report Type: Spontaneous
  Country: DE (occurrence: DE)
  Receive Date: 20200420
  Receipt Date: 20200420
  Transmission Date: 20200714
  Serious: Yes (Life-Threatening, Other)
  Sender: FDA-Public Use
  Company Number: DE-BAYER-2020-064838

PATIENT
  Age: 47 Year
  Sex: Female

DRUGS (1)
  1. KYLEENA [Suspect]
     Active Substance: LEVONORGESTREL
     Indication: MENORRHAGIA
     Dosage: 17.5 ?G  PERDAY CONTINUOUSLY
     Route: 015

REACTIONS (6)
  - Pulmonary embolism [None]
  - Cardiac arrest [None]
  - Drug effective for unapproved indication [None]
  - Atrial fibrillation [None]
  - Product use in unapproved indication [None]
  - Off label use [None]
